FAERS Safety Report 16917375 (Version 2)
Quarter: 2020Q2

REPORT INFORMATION
  Report Type: Spontaneous
  Country: ES (occurrence: ES)
  Receive Date: 20191015
  Receipt Date: 20200529
  Transmission Date: 20200713
  Serious: Yes (Hospitalization)
  Sender: FDA-Public Use
  Company Number: ES-CIPLA LTD.-2019ES06888

PATIENT

DRUGS (5)
  1. FLUCONAZOL [Concomitant]
     Active Substance: FLUCONAZOLE
     Indication: PRODUCT USED FOR UNKNOWN INDICATION
     Dosage: 100 MILLIGRAM, BID (EVERY 12 HOURS)
     Route: 048
     Dates: start: 20190208, end: 20190225
  2. ACICLOVIR [Concomitant]
     Active Substance: ACYCLOVIR
     Indication: PRODUCT USED FOR UNKNOWN INDICATION
     Dosage: 800 MILLIGRAM, BID (EVERY 12 HOURS)
     Route: 048
     Dates: start: 20190203, end: 20190208
  3. LEVOFLOXACIN. [Suspect]
     Active Substance: LEVOFLOXACIN
     Indication: FEBRILE NEUTROPENIA
     Dosage: 500 MILLIGRAM, QD
     Route: 048
     Dates: start: 20190211, end: 20190222
  4. IMMUNOGLOBULIN ANTI HUMAN T-LYMPHOCYTE [Concomitant]
     Active Substance: THYMOCYTE IMMUNE GLOBULIN NOS
     Indication: PROPHYLAXIS AGAINST TRANSPLANT REJECTION
     Dosage: UNK
     Route: 042
     Dates: start: 20190204, end: 20190206
  5. CEFTRIAXONA [CEFTRIAXONE] [Concomitant]
     Active Substance: CEFTRIAXONE
     Indication: PYREXIA
     Dosage: 2 GRAM, QD
     Route: 042
     Dates: start: 20190206, end: 20190211

REACTIONS (1)
  - Neuralgic amyotrophy [Recovered/Resolved]

NARRATIVE: CASE EVENT DATE: 20190217
